FAERS Safety Report 11930989 (Version 1)
Quarter: 2016Q1

REPORT INFORMATION
  Report Type: Spontaneous
  Country: US (occurrence: US)
  Receive Date: 20160120
  Receipt Date: 20160120
  Transmission Date: 20160526
  Serious: No
  Sender: FDA-Public Use
  Company Number: US-BAYER-2016-007010

PATIENT
  Age: 49 Year
  Sex: Female
  Weight: 88.44 kg

DRUGS (1)
  1. ALEVE [Suspect]
     Active Substance: NAPROXEN SODIUM
     Indication: MYALGIA
     Dosage: 2 DF, QD (1 IN THE MORNING WITH BREAKFAST AND THEN 1 AT NIGHT BEFORE BED)
     Route: 048
     Dates: start: 201501

REACTIONS (1)
  - Product use issue [None]

NARRATIVE: CASE EVENT DATE: 201501
